FAERS Safety Report 8152894-4 (Version None)
Quarter: 2012Q1

REPORT INFORMATION
  Report Type: 
  Country: None (occurrence: None)
  Receive Date: 20120221
  Receipt Date: 20120209
  Transmission Date: 20120608
  Serious: Yes (Other)
  Sender: FDA-Public Use
  Company Number: US-JNJFOC-20120102976

PATIENT
  Sex: Male
  Weight: 58.97 kg

DRUGS (3)
  1. PENTASA [Concomitant]
     Indication: CROHN'S DISEASE
     Route: 048
     Dates: start: 20110601
  2. IMURAN [Concomitant]
     Indication: CROHN'S DISEASE
     Route: 048
     Dates: start: 20110601
  3. REMICADE [Suspect]
     Indication: CROHN'S DISEASE
     Route: 042
     Dates: start: 20110601, end: 20120106

REACTIONS (6)
  - INFUSION RELATED REACTION [None]
  - ERYTHEMA [None]
  - DRUG INEFFECTIVE [None]
  - FEELING COLD [None]
  - TREMOR [None]
  - CHEST DISCOMFORT [None]
